FAERS Safety Report 20406140 (Version 14)
Quarter: 2023Q1

REPORT INFORMATION
  Report Type: Report from Study
  Country: US (occurrence: US)
  Receive Date: 20220131
  Receipt Date: 20230130
  Transmission Date: 20230418
  Serious: No
  Sender: FDA-Public Use
  Company Number: US-GSKCCFUS-Case-00864302_AE-50301

PATIENT
  Age: 51 Year
  Sex: Male

DRUGS (1)
  1. BELANTAMAB MAFODOTIN [Suspect]
     Active Substance: BELANTAMAB MAFODOTIN
     Indication: Plasma cell myeloma
     Dosage: UNK
     Dates: start: 202006

REACTIONS (14)
  - Renal disorder [Unknown]
  - Corneal disorder [Recovered/Resolved]
  - Eye disorder [Unknown]
  - Blood creatinine increased [Not Recovered/Not Resolved]
  - Albumin urine present [Not Recovered/Not Resolved]
  - Protein urine present [Not Recovered/Not Resolved]
  - Keratopathy [Unknown]
  - Visual acuity reduced [Not Recovered/Not Resolved]
  - Fatigue [Unknown]
  - Photophobia [Unknown]
  - Foreign body sensation in eyes [Unknown]
  - Visual impairment [Unknown]
  - Dry eye [Unknown]
  - Eye ulcer [Unknown]

NARRATIVE: CASE EVENT DATE: 20200701
